FAERS Safety Report 8251291-0 (Version None)
Quarter: 2012Q2

REPORT INFORMATION
  Report Type: 
  Country: None (occurrence: None)
  Receive Date: 20120402
  Receipt Date: 20120326
  Transmission Date: 20120825
  Serious: Yes (Other)
  Sender: FDA-Public Use
  Company Number: US-US-EMD SERONO, INC.-7090695

PATIENT
  Sex: Female
  Weight: 59 kg

DRUGS (6)
  1. DIABETES MEDICATION [Concomitant]
     Indication: TYPE 2 DIABETES MELLITUS
  2. VITAMIN TAB [Concomitant]
     Indication: PRODUCT USED FOR UNKNOWN INDICATION
  3. HIGH CHOLESTEROL MEDICATION [Concomitant]
     Indication: BLOOD CHOLESTEROL INCREASED
  4. HIGH BLOOD PRESSURE MEDICATION [Concomitant]
     Indication: HYPERTENSION
  5. REBIF [Suspect]
     Indication: MULTIPLE SCLEROSIS
     Route: 058
     Dates: start: 20050401, end: 20110201
  6. REBIF [Suspect]
     Route: 058
     Dates: start: 20110701

REACTIONS (4)
  - INJECTION SITE HAEMATOMA [None]
  - INJECTION SITE ERYTHEMA [None]
  - BREAST CANCER STAGE II [None]
  - INJECTION SITE DISCOLOURATION [None]
